FAERS Safety Report 9103578 (Version 1)
Quarter: 2013Q1

REPORT INFORMATION
  Report Type: Spontaneous
  Country: GB (occurrence: GB)
  Receive Date: 20130218
  Receipt Date: 20130218
  Transmission Date: 20140127
  Serious: Yes (Other)
  Sender: FDA-Public Use
  Company Number: GB-GLAXOSMITHKLINE-B0867186A

PATIENT
  Age: 68 Year
  Sex: Male

DRUGS (4)
  1. PAZOPANIB [Suspect]
     Indication: METASTATIC RENAL CELL CARCINOMA
     Dosage: 800MG PER DAY
     Route: 048
     Dates: start: 20121108, end: 20121119
  2. PARACETAMOL [Concomitant]
  3. METOCLOPRAMIDE [Concomitant]
  4. LOPERAMIDE [Concomitant]

REACTIONS (6)
  - Hepatotoxicity [Recovering/Resolving]
  - Nausea [Recovering/Resolving]
  - Fatigue [Recovering/Resolving]
  - Faeces pale [Recovering/Resolving]
  - Yellow skin [Recovering/Resolving]
  - Liver function test abnormal [Recovering/Resolving]
